FAERS Safety Report 6224768-7 (Version None)
Quarter: 2009Q2

REPORT INFORMATION
  Report Type: 
  Country: None (occurrence: None)
  Receive Date: 20090612
  Receipt Date: 20090325
  Transmission Date: 20091009
  Serious: No
  Sender: FDA-Public Use
  Company Number: US-ABBOTT-09P-163-0565285-00

PATIENT
  Sex: Male

DRUGS (1)
  1. HUMIRA [Suspect]
     Indication: COLITIS ULCERATIVE
     Route: 058

REACTIONS (4)
  - DRY SKIN [None]
  - PAIN OF SKIN [None]
  - RASH [None]
  - SKIN BURNING SENSATION [None]
